FAERS Safety Report 14466391 (Version 1)
Quarter: 2018Q1

REPORT INFORMATION
  Report Type: Spontaneous
  Country: US (occurrence: US)
  Receive Date: 20180130
  Receipt Date: 20180130
  Transmission Date: 20180509
  Serious: No
  Sender: FDA-Public Use
  Company Number: None

PATIENT
  Sex: Female

DRUGS (1)
  1. STELARA [Suspect]
     Active Substance: USTEKINUMAB
     Indication: RHEUMATOID ARTHRITIS
     Dosage: 45MG ON DAY, THEN 4 WEEKS LATER, THEN Q12W SQ
     Route: 058
     Dates: start: 20180109

REACTIONS (3)
  - Fatigue [None]
  - Memory impairment [None]
  - Mental impairment [None]
